FAERS Safety Report 8610528-6 (Version None)
Quarter: 2012Q3

REPORT INFORMATION
  Report Type: 
  Country: None (occurrence: None)
  Receive Date: 20120822
  Receipt Date: 20120813
  Transmission Date: 20120928
  Serious: Yes (Other)
  Sender: FDA-Public Use
  Company Number: CA-JNJFOC-20120610467

PATIENT
  Sex: Male
  Weight: 98 kg

DRUGS (4)
  1. REMICADE [Suspect]
     Indication: CROHN'S DISEASE
     Route: 042
     Dates: start: 20120423
  2. IMURAN [Concomitant]
     Route: 048
  3. REMICADE [Suspect]
     Route: 042
     Dates: start: 20111116
  4. REMICADE [Suspect]
     Route: 042
     Dates: start: 20120813

REACTIONS (4)
  - FISTULA [None]
  - SUBCUTANEOUS ABSCESS [None]
  - RECTAL HAEMORRHAGE [None]
  - DIARRHOEA [None]
